FAERS Safety Report 23738302 (Version 2)
Quarter: 2024Q2

REPORT INFORMATION
  Report Type: Spontaneous
  Country: IN (occurrence: IN)
  Receive Date: 20240412
  Receipt Date: 20240424
  Transmission Date: 20240715
  Serious: Yes (Other)
  Sender: FDA-Public Use
  Company Number: IN-PFIZER INC-PV202400046947

PATIENT
  Age: 36 Year
  Sex: Female

DRUGS (4)
  1. AROMASIN [Suspect]
     Active Substance: EXEMESTANE
     Dosage: 25 MG, 1X/DAY
     Route: 048
     Dates: start: 202309
  2. GOSERELIN [Concomitant]
     Active Substance: GOSERELIN
     Dosage: 3.6 MG,Q 4 WEEKLY
  3. SHELCAL OS [Concomitant]
     Dosage: 1 DF, 2X/DAY
  4. ZOLEDRONIC ACID [Concomitant]
     Active Substance: ZOLEDRONIC ACID
     Dosage: 4 MG, EVERY 6 MONTHLY

REACTIONS (4)
  - Kidney fibrosis [Unknown]
  - Hepatic steatosis [Unknown]
  - Osteopenia [Unknown]
  - Seroma [Unknown]

NARRATIVE: CASE EVENT DATE: 20230904
